FAERS Safety Report 7466000-2 (Version None)
Quarter: 2011Q2

REPORT INFORMATION
  Report Type: 
  Country: None (occurrence: None)
  Receive Date: 20110509
  Receipt Date: 20100517
  Transmission Date: 20111010
  Serious: No
  Sender: FDA-Public Use
  Company Number: US-ALEXION-A201000568

PATIENT
  Sex: Female

DRUGS (6)
  1. MORPHINE SULFATE [Concomitant]
     Indication: ABDOMINAL PAIN
     Route: 041
  2. MORPHINE SULFATE [Concomitant]
     Dosage: 90 MG, BID
     Route: 048
  3. MIRALAX [Concomitant]
     Indication: CONSTIPATION
     Dosage: UNK
     Route: 048
  4. SOLIRIS [Suspect]
     Indication: PAROXYSMAL NOCTURNAL HAEMOGLOBINURIA
     Dosage: 600 MG, UNK
     Route: 042
     Dates: start: 20100514, end: 20100603
  5. SOLIRIS [Suspect]
     Dosage: 900 MG, UNK
     Route: 042
     Dates: start: 20100610
  6. MORPHINE SULFATE [Concomitant]
     Dosage: UNK
     Route: 048

REACTIONS (3)
  - HEADACHE [None]
  - NAUSEA [None]
  - VOMITING [None]
